FAERS Safety Report 17907012 (Version 2)
Quarter: 2020Q2

REPORT INFORMATION
  Report Type: Spontaneous
  Country: US (occurrence: US)
  Receive Date: 20200617
  Receipt Date: 20200618
  Transmission Date: 20200714
  Serious: No
  Sender: FDA-Public Use
  Company Number: US-PFIZER INC-2020234584

PATIENT
  Sex: Female

DRUGS (3)
  1. PRISTIQ EXTENDED-RELEASE [Suspect]
     Active Substance: DESVENLAFAXINE SUCCINATE
     Dosage: 100 MG (FROM 100MG TO 50 MG THEN TO 25MG)
  2. PRISTIQ EXTENDED-RELEASE [Suspect]
     Active Substance: DESVENLAFAXINE SUCCINATE
     Dosage: 25 MG (FROM 100MG TO 50 MG THEN TO 25MG)
  3. PRISTIQ EXTENDED-RELEASE [Suspect]
     Active Substance: DESVENLAFAXINE SUCCINATE
     Dosage: 50 MG (FROM 100MG TO 50 MG THEN TO 25MG)

REACTIONS (4)
  - Intentional dose omission [Unknown]
  - Drug ineffective [Unknown]
  - Malaise [Unknown]
  - Wrong technique in product usage process [Unknown]
